APPROVED DRUG PRODUCT: LEVONORGESTREL
Active Ingredient: LEVONORGESTREL
Strength: 1.5MG
Dosage Form/Route: TABLET;ORAL
Application: A202739 | Product #001
Applicant: XIROMED LLC
Approved: Oct 31, 2014 | RLD: No | RS: No | Type: OTC